FAERS Safety Report 9064946 (Version 2)
Quarter: 2013Q2

REPORT INFORMATION
  Report Type: Spontaneous
  Country: US (occurrence: US)
  Receive Date: 20130206
  Receipt Date: 20130529
  Transmission Date: 20140414
  Serious: Yes (Other)
  Sender: FDA-Public Use
  Company Number: US-ROCHE-1184767

PATIENT
  Sex: Male

DRUGS (2)
  1. ACCUTANE [Suspect]
     Indication: ACNE
     Dosage: 18 WEEKS COURSE
     Route: 065
  2. ACCUTANE [Suspect]
     Dosage: SECOND COURSE
     Route: 065

REACTIONS (4)
  - Injury [Unknown]
  - Crohn^s disease [Unknown]
  - Irritable bowel syndrome [Unknown]
  - Mass [Unknown]
